FAERS Safety Report 10019384 (Version 1)
Quarter: 2014Q1

REPORT INFORMATION
  Report Type: Spontaneous
  Country: US (occurrence: US)
  Receive Date: 20140318
  Receipt Date: 20140318
  Transmission Date: 20141002
  Serious: No
  Sender: FDA-Public Use
  Company Number: US-009507513-1403USA005695

PATIENT
  Age: 6 Year
  Sex: 0

DRUGS (3)
  1. ASMANEX TWISTHALER [Suspect]
     Indication: ASTHMA
     Dosage: 220 MCG/ONE PUFF, ONCE DAILY
     Route: 055
     Dates: start: 20131022
  2. ASMANEX TWISTHALER [Suspect]
     Dosage: UNK
  3. ASMANEX TWISTHALER [Suspect]
     Indication: ASTHMA
     Dosage: UNK
     Route: 055

REACTIONS (4)
  - Overdose [Unknown]
  - Accidental exposure to product [Unknown]
  - No adverse event [Unknown]
  - Product quality issue [Unknown]
